FAERS Safety Report 9635442 (Version 2)
Quarter: 2013Q4

REPORT INFORMATION
  Report Type: Spontaneous
  Country: US (occurrence: US)
  Receive Date: 20131021
  Receipt Date: 20131021
  Transmission Date: 20140711
  Serious: Yes (Other)
  Sender: FDA-Public Use
  Company Number: US-BAYER-2013-120350

PATIENT
  Sex: Female

DRUGS (1)
  1. BAYER GENUINE ASPIRIN ORIGINAL STRENGTH [Suspect]
     Indication: IMMUNE TOLERANCE INDUCTION
     Dosage: TAB
     Dates: start: 201206

REACTIONS (5)
  - Gastric disorder [Recovered/Resolved]
  - Aphagia [Recovered/Resolved]
  - Weight decreased [Recovered/Resolved]
  - Coeliac disease [None]
  - Off label use [None]
